FAERS Safety Report 7516155-6 (Version None)
Quarter: 2011Q2

REPORT INFORMATION
  Report Type: 
  Country: None (occurrence: None)
  Receive Date: 20110601
  Receipt Date: 20110421
  Transmission Date: 20111010
  Serious: Yes (Other)
  Sender: FDA-Public Use
  Company Number: US-BAYER-201030376NA

PATIENT
  Age: 21 Year
  Sex: Female
  Weight: 111 kg

DRUGS (3)
  1. YAZ [Suspect]
     Indication: ACNE
  2. VICODIN [Concomitant]
  3. YAZ [Suspect]
     Indication: CONTRACEPTION
     Dosage: UNK UNK, UNK
     Route: 048
     Dates: start: 20070901, end: 20090901

REACTIONS (2)
  - CHOLELITHIASIS [None]
  - BILE DUCT OBSTRUCTION [None]
